FAERS Safety Report 7043324-4 (Version None)
Quarter: 2010Q4

REPORT INFORMATION
  Report Type: 
  Country: None (occurrence: None)
  Receive Date: 20101013
  Receipt Date: 20100817
  Transmission Date: 20110411
  Serious: No
  Sender: FDA-Public Use
  Company Number: US-ASTRAZENECA-2010SE38583

PATIENT
  Age: 63 Year
  Sex: Female

DRUGS (1)
  1. SYMBICORT [Suspect]
     Dosage: 2 PUFFS BID
     Route: 055
     Dates: start: 20100101

REACTIONS (3)
  - DYSPHONIA [None]
  - EMOTIONAL DISORDER [None]
  - OROPHARYNGEAL PAIN [None]
